FAERS Safety Report 8533614-8 (Version None)
Quarter: 2012Q3

REPORT INFORMATION
  Report Type: 
  Country: None (occurrence: None)
  Receive Date: 20120717
  Receipt Date: 20120717
  Transmission Date: 20120928
  Serious: Yes (Other)
  Sender: FDA-Public Use
  Company Number: None

PATIENT
  Age: 73 Year
  Sex: Female
  Weight: 59 kg

DRUGS (13)
  1. FUROSEMIDE [Concomitant]
  2. PRAVASTATIN [Concomitant]
  3. HYDROMORPHONE HCL [Suspect]
     Indication: PAIN
     Dosage: 0.5 MG PRN IV BOLUS
     Route: 040
     Dates: start: 20111202, end: 20111202
  4. AMLODIPINE [Concomitant]
  5. CARVEDILOL [Concomitant]
  6. IRON POLYSACCHARIDE [Concomitant]
  7. LANTUS [Concomitant]
  8. PANTOPRAZOLE [Concomitant]
  9. ALPRAZOLAM [Concomitant]
  10. OXYCODONE HCL [Suspect]
     Indication: PAIN
     Dosage: 30 MG Q8H PO
     Route: 048
     Dates: start: 20111204, end: 20111205
  11. SERTRALINE HYDROCHLORIDE [Concomitant]
  12. SLIDING SCALE INSULIN [Concomitant]
  13. HYDRALAZINE HCL [Concomitant]

REACTIONS (4)
  - UNRESPONSIVE TO STIMULI [None]
  - FALL [None]
  - HIP FRACTURE [None]
  - HYPOGLYCAEMIA [None]
